FAERS Safety Report 12663829 (Version 1)
Quarter: 2016Q3

REPORT INFORMATION
  Report Type: Report from Study
  Country: CO (occurrence: CO)
  Receive Date: 20160818
  Receipt Date: 20160818
  Transmission Date: 20161109
  Serious: Yes (Hospitalization, Other)
  Sender: FDA-Public Use
  Company Number: CO-JNJFOC-20160608293

PATIENT
  Age: 64 Year
  Sex: Male
  Weight: 59 kg

DRUGS (3)
  1. IMBRUVICA [Suspect]
     Active Substance: IBRUTINIB
     Indication: CHRONIC LYMPHOCYTIC LEUKAEMIA
     Route: 048
     Dates: start: 20160713, end: 20160727
  2. IMBRUVICA [Suspect]
     Active Substance: IBRUTINIB
     Indication: CHRONIC LYMPHOCYTIC LEUKAEMIA
     Route: 048
     Dates: start: 20160518, end: 20160628
  3. IMBRUVICA [Suspect]
     Active Substance: IBRUTINIB
     Indication: CHRONIC LYMPHOCYTIC LEUKAEMIA
     Route: 048
     Dates: start: 20160802

REACTIONS (9)
  - Dysphonia [Not Recovered/Not Resolved]
  - Chills [Not Recovered/Not Resolved]
  - Inflammation [Recovering/Resolving]
  - Cough [Recovering/Resolving]
  - Pyrexia [Recovering/Resolving]
  - Malaise [Not Recovered/Not Resolved]
  - Odynophagia [Recovering/Resolving]
  - Platelet count decreased [Not Recovered/Not Resolved]
  - Lung infection [Recovering/Resolving]

NARRATIVE: CASE EVENT DATE: 20160607
